FAERS Safety Report 9239325 (Version 1)
Quarter: 2013Q2

REPORT INFORMATION
  Report Type: Spontaneous
  Country: FR (occurrence: FR)
  Receive Date: 20130418
  Receipt Date: 20130418
  Transmission Date: 20140414
  Serious: Yes (Hospitalization)
  Sender: FDA-Public Use
  Company Number: FR-PFIZER INC-2013115528

PATIENT
  Age: 69 Year
  Sex: Female

DRUGS (7)
  1. VFEND [Suspect]
     Dosage: 200 MG, 2X/DAY
     Route: 048
     Dates: start: 20130321, end: 20130327
  2. ROCEPHINE [Suspect]
     Dosage: 2 G, 1X/DAY
     Route: 042
     Dates: start: 20130321, end: 20130325
  3. ZELITREX [Concomitant]
     Dosage: 1 DF, 1X/DAY
  4. INIPOMP [Concomitant]
     Dosage: 1 DF, 1X/DAY
  5. CETIRIZINE [Concomitant]
     Dosage: 1 DF, 1X/DAY
  6. SMECTA ^DAE WOONG^ [Concomitant]
  7. TRANXENE [Concomitant]
     Dosage: 1 DF, 1X/DAY

REACTIONS (3)
  - Leukocytoclastic vasculitis [Recovering/Resolving]
  - Toxic skin eruption [Recovering/Resolving]
  - Drug eruption [Recovering/Resolving]
